FAERS Safety Report 6686489-6 (Version None)
Quarter: 2010Q2

REPORT INFORMATION
  Report Type: 
  Country: None (occurrence: None)
  Receive Date: 20100415
  Receipt Date: 20100401
  Transmission Date: 20101027
  Serious: Yes (Death, Other)
  Sender: FDA-Public Use
  Company Number: 009671

PATIENT
  Age: 85 Year
  Sex: Male

DRUGS (1)
  1. KEPPRA [Suspect]
     Indication: SUBDURAL HAEMATOMA
     Dosage: INTRAVENOUS
     Route: 042

REACTIONS (1)
  - ANAPHYLACTIC REACTION [None]
